APPROVED DRUG PRODUCT: CLOZAPINE
Active Ingredient: CLOZAPINE
Strength: 100MG
Dosage Form/Route: TABLET;ORAL
Application: A203807 | Product #002
Applicant: DR REDDYS LABORATORIES SA
Approved: Sep 17, 2015 | RLD: No | RS: No | Type: DISCN